FAERS Safety Report 12848953 (Version 1)
Quarter: 2016Q4

REPORT INFORMATION
  Report Type: Spontaneous
  Country: US (occurrence: US)
  Receive Date: 20161014
  Receipt Date: 20161014
  Transmission Date: 20170207
  Serious: No
  Sender: FDA-Public Use
  Company Number: US-BAYER-2016-197759

PATIENT
  Age: 5 Year
  Sex: Male

DRUGS (2)
  1. CHILDREN CLARITIN ALLERGY [Suspect]
     Active Substance: LORATADINE
     Indication: SEASONAL ALLERGY
     Dosage: 2 DF, QD AS NEEDED OVER THE PAST 6 MONTHS
  2. CHILDREN CLARITIN ALLERGY [Suspect]
     Active Substance: LORATADINE
     Indication: SEASONAL ALLERGY
     Dosage: 4 DF, ONCE
     Dates: start: 20161012, end: 20161012

REACTIONS (1)
  - Incorrect dose administered [Recovered/Resolved]

NARRATIVE: CASE EVENT DATE: 20161012
